FAERS Safety Report 5856706-0 (Version None)
Quarter: 2008Q3

REPORT INFORMATION
  Report Type: 
  Country: None (occurrence: None)
  Receive Date: 20080821
  Receipt Date: 20080806
  Transmission Date: 20090109
  Serious: Yes (Other)
  Sender: FDA-Public Use
  Company Number: 2008AL009612

PATIENT
  Sex: Male

DRUGS (1)
  1. OXAZEPAM [Suspect]
     Dosage: QD

REACTIONS (2)
  - FALL [None]
  - FEMUR FRACTURE [None]
